FAERS Safety Report 5506932-5 (Version None)
Quarter: 2007Q4

REPORT INFORMATION
  Report Type: 
  Country: None (occurrence: None)
  Receive Date: 20071105
  Receipt Date: 20071024
  Transmission Date: 20080405
  Serious: Yes (Other)
  Sender: FDA-Public Use
  Company Number: GB-PFIZER INC-2007088213

PATIENT
  Age: 50 Year
  Sex: Male
  Weight: 95 kg

DRUGS (15)
  1. EPLERENONE [Suspect]
     Route: 048
  2. ALLOPURINOL [Concomitant]
  3. AMOXICILLIN [Concomitant]
  4. ACETYLSALICYLIC ACID SRT [Concomitant]
  5. BUMETANIDE [Concomitant]
  6. DIHYDROCODEINE BITARTRATE INJ [Concomitant]
  7. DIGOXIN [Concomitant]
  8. IBUGEL [Concomitant]
  9. LANSOPRAZOLE [Concomitant]
  10. QUININE SULFATE [Concomitant]
  11. RAMIPRIL [Concomitant]
  12. SERETIDE [Concomitant]
  13. SPIRONOLACTONE [Concomitant]
  14. VENTOLIN [Concomitant]
  15. WARFARIN SODIUM [Concomitant]

REACTIONS (1)
  - PHOTOSENSITIVITY REACTION [None]
